FAERS Safety Report 22240015 (Version 5)
Quarter: 2023Q2

REPORT INFORMATION
  Report Type: Spontaneous
  Country: US (occurrence: US)
  Receive Date: 20230421
  Receipt Date: 20230630
  Transmission Date: 20230721
  Serious: Yes (Hospitalization, Other)
  Sender: FDA-Public Use
  Company Number: US-AGIOS-2304US03319

PATIENT
  Age: 45 Year
  Sex: Male

DRUGS (2)
  1. PYRUKYND [Suspect]
     Active Substance: MITAPIVAT
     Indication: Haemolytic anaemia
     Dosage: 20 MILLIGRAM, BID
     Route: 048
     Dates: start: 20221020
  2. PYRUKYND [Suspect]
     Active Substance: MITAPIVAT
     Dosage: 20 MILLIGRAM, BID
     Route: 048
     Dates: start: 20230630

REACTIONS (14)
  - Paraesthesia [Unknown]
  - Haemoglobin decreased [Unknown]
  - Asthenia [Unknown]
  - Pain in extremity [Unknown]
  - Chest pain [Unknown]
  - Renal impairment [Unknown]
  - Renal failure [Unknown]
  - Dehydration [Unknown]
  - Haemorrhoidal haemorrhage [Unknown]
  - Product dose omission issue [Unknown]
  - Off label use [Unknown]
  - Blood pressure increased [Unknown]
  - Nasal congestion [Unknown]
  - Haemoglobin decreased [Unknown]

NARRATIVE: CASE EVENT DATE: 20230410
